FAERS Safety Report 19085567 (Version 2)
Quarter: 2021Q2

REPORT INFORMATION
  Report Type: Spontaneous
  Country: US (occurrence: US)
  Receive Date: 20210401
  Receipt Date: 20210416
  Transmission Date: 20210717
  Serious: Yes (Life-Threatening, Other)
  Sender: FDA-Public Use
  Company Number: US-BAXTER-2021BAX006441

PATIENT
  Age: 68 Year
  Sex: Female

DRUGS (6)
  1. VINCRISTINE [Suspect]
     Active Substance: VINCRISTINE
     Indication: HAEMATOPOIETIC NEOPLASM
     Route: 065
  2. RITUXIMAB. [Suspect]
     Active Substance: RITUXIMAB
     Indication: HAEMATOPOIETIC NEOPLASM
     Route: 065
  3. DOXIL [Suspect]
     Active Substance: DOXORUBICIN HYDROCHLORIDE
     Indication: HAEMATOPOIETIC NEOPLASM
     Route: 065
  4. CYCLOPHOSPHAMIDE FOR INJECTION, USP [Suspect]
     Active Substance: CYCLOPHOSPHAMIDE
     Indication: HAEMATOPOIETIC NEOPLASM
     Route: 065
  5. PREDNISONE. [Suspect]
     Active Substance: PREDNISONE
     Indication: HAEMATOPOIETIC NEOPLASM
     Route: 065
  6. METHOTREXATE. [Suspect]
     Active Substance: METHOTREXATE
     Indication: HAEMATOPOIETIC NEOPLASM
     Route: 037

REACTIONS (5)
  - Febrile neutropenia [Unknown]
  - Multiple organ dysfunction syndrome [Unknown]
  - Abdominal abscess [Unknown]
  - Lactic acidosis [Unknown]
  - Pleural effusion [Unknown]
